FAERS Safety Report 16922423 (Version 1)
Quarter: 2019Q4

REPORT INFORMATION
  Report Type: Spontaneous
  Country: CN (occurrence: CN)
  Receive Date: 20191016
  Receipt Date: 20191016
  Transmission Date: 20200122
  Serious: Yes (Death, Other)
  Sender: FDA-Public Use
  Company Number: CN-CHEPLA-C20192518_10

PATIENT
  Age: 3 Year
  Sex: Male

DRUGS (34)
  1. MITOXANTRONE [Suspect]
     Active Substance: MITOXANTRONE HYDROCHLORIDE
     Indication: PREMEDICATION
  2. GRANULOCYTE COLONY STIMULATING FACTOR [Suspect]
     Active Substance: GRANULOCYTE COLONY-STIMULATING FACTOR NOS
     Indication: PREMEDICATION
  3. MITOXANTRONE [Suspect]
     Active Substance: MITOXANTRONE HYDROCHLORIDE
     Indication: STEM CELL TRANSPLANT
  4. ARA-C [Suspect]
     Active Substance: CYTARABINE
     Indication: PREMEDICATION
  5. MYCOPHENOLATE MOFETIL. [Suspect]
     Active Substance: MYCOPHENOLATE MOFETIL
     Indication: PROPHYLAXIS AGAINST GRAFT VERSUS HOST DISEASE
     Route: 065
  6. DECITABINE. [Suspect]
     Active Substance: DECITABINE
     Indication: BONE MARROW CONDITIONING REGIMEN
     Route: 065
  7. ARA-C [Suspect]
     Active Substance: CYTARABINE
     Indication: STEM CELL TRANSPLANT
  8. ATG [Suspect]
     Active Substance: LAPINE T-LYMPHOCYTE IMMUNE GLOBULIN
     Indication: PREMEDICATION
  9. ARA-C [Suspect]
     Active Substance: CYTARABINE
     Indication: BONE MARROW CONDITIONING REGIMEN
     Route: 065
  10. BUSULFAN. [Suspect]
     Active Substance: BUSULFAN
     Indication: STEM CELL TRANSPLANT
     Route: 065
  11. GRANULOCYTE COLONY STIMULATING FACTOR [Suspect]
     Active Substance: GRANULOCYTE COLONY-STIMULATING FACTOR NOS
     Indication: STEM CELL TRANSPLANT
  12. ALPROSTADIL. [Suspect]
     Active Substance: ALPROSTADIL
     Indication: PROPHYLAXIS
     Route: 065
  13. MITOXANTRONE [Suspect]
     Active Substance: MITOXANTRONE HYDROCHLORIDE
     Indication: BONE MARROW CONDITIONING REGIMEN
     Route: 065
  14. GRANULOCYTE COLONY STIMULATING FACTOR [Suspect]
     Active Substance: GRANULOCYTE COLONY-STIMULATING FACTOR NOS
     Indication: BONE MARROW CONDITIONING REGIMEN
     Route: 065
  15. FLUDARABINE [Suspect]
     Active Substance: FLUDARABINE PHOSPHATE
     Indication: STEM CELL TRANSPLANT
  16. ATG [Suspect]
     Active Substance: LAPINE T-LYMPHOCYTE IMMUNE GLOBULIN
     Indication: BONE MARROW CONDITIONING REGIMEN
     Route: 065
  17. CYCLOPHOSPHAMIDE. [Suspect]
     Active Substance: CYCLOPHOSPHAMIDE
     Indication: PREMEDICATION
  18. HOMOHARRINGTONINE [Suspect]
     Active Substance: OMACETAXINE MEPESUCCINATE
     Indication: PREMEDICATION
  19. HOMOHARRINGTONINE [Suspect]
     Active Substance: OMACETAXINE MEPESUCCINATE
     Indication: STEM CELL TRANSPLANT
  20. CYCLOPHOSPHAMIDE. [Suspect]
     Active Substance: CYCLOPHOSPHAMIDE
     Indication: STEM CELL TRANSPLANT
  21. SULFAMETHOXAZOLE [Suspect]
     Active Substance: SULFAMETHOXAZOLE
     Indication: INFECTION PROPHYLAXIS
     Route: 065
  22. ATG [Suspect]
     Active Substance: LAPINE T-LYMPHOCYTE IMMUNE GLOBULIN
     Indication: STEM CELL TRANSPLANT
  23. CYCLOPHOSPHAMIDE. [Suspect]
     Active Substance: CYCLOPHOSPHAMIDE
     Indication: BONE MARROW CONDITIONING REGIMEN
     Route: 065
  24. DECITABINE. [Suspect]
     Active Substance: DECITABINE
     Indication: PREMEDICATION
  25. METHOTREXATE. [Suspect]
     Active Substance: METHOTREXATE
     Indication: PROPHYLAXIS AGAINST GRAFT VERSUS HOST DISEASE
     Route: 065
  26. DECITABINE. [Suspect]
     Active Substance: DECITABINE
     Indication: STEM CELL TRANSPLANT
  27. ACYCLOVIR. [Suspect]
     Active Substance: ACYCLOVIR
     Indication: ANTIVIRAL PROPHYLAXIS
     Route: 065
  28. BUSULFAN. [Suspect]
     Active Substance: BUSULFAN
     Indication: BONE MARROW CONDITIONING REGIMEN
  29. BUSULFAN. [Suspect]
     Active Substance: BUSULFAN
     Indication: PREMEDICATION
  30. HOMOHARRINGTONINE [Suspect]
     Active Substance: OMACETAXINE MEPESUCCINATE
     Indication: BONE MARROW CONDITIONING REGIMEN
     Route: 065
  31. GANCICLOVIR. [Suspect]
     Active Substance: GANCICLOVIR
     Indication: ANTIVIRAL PROPHYLAXIS
     Route: 065
  32. FLUDARABINE [Suspect]
     Active Substance: FLUDARABINE PHOSPHATE
     Indication: BONE MARROW CONDITIONING REGIMEN
     Route: 065
  33. FLUDARABINE [Suspect]
     Active Substance: FLUDARABINE PHOSPHATE
     Indication: PREMEDICATION
  34. URSODEOXYCHOLIC ACID [Suspect]
     Active Substance: URSODIOL
     Indication: PROPHYLAXIS
     Route: 065

REACTIONS (8)
  - Pneumonia [Unknown]
  - Cystitis haemorrhagic [Unknown]
  - Capillary leak syndrome [Unknown]
  - Traumatic lung injury [Fatal]
  - Thrombotic microangiopathy [Unknown]
  - Lower respiratory tract infection fungal [Unknown]
  - Respiratory failure [Fatal]
  - Cytomegalovirus viraemia [Unknown]
